FAERS Safety Report 17572684 (Version 1)
Quarter: 2020Q1

REPORT INFORMATION
  Report Type: Spontaneous
  Country: US (occurrence: US)
  Receive Date: 20200323
  Receipt Date: 20200323
  Transmission Date: 20200409
  Serious: No
  Sender: FDA-Public Use
  Company Number: None

PATIENT
  Age: 76 Year
  Sex: Female
  Weight: 58.5 kg

DRUGS (5)
  1. ACES+ZN [Concomitant]
  2. LATANOPROST. [Concomitant]
     Active Substance: LATANOPROST
  3. ZICAM COLD REMEDY RAPIDMELTS [Suspect]
     Active Substance: HOMEOPATHICS\ZINC ACETATE ANHYDROUS\ZINC GLUCONATE
     Indication: NASOPHARYNGITIS
     Dosage: ?          QUANTITY:25 TABLET(S);OTHER FREQUENCY:EVERY 3 HRS.;?
     Route: 048
     Dates: start: 20200305, end: 20200310
  4. CALCIUM CITRATE +D3 [Concomitant]
  5. 1000MG VITAMIN C [Concomitant]

REACTIONS (3)
  - Nasal congestion [None]
  - Ageusia [None]
  - Anosmia [None]

NARRATIVE: CASE EVENT DATE: 20200310
